FAERS Safety Report 21074613 (Version 1)
Quarter: 2022Q3

REPORT INFORMATION
  Report Type: Spontaneous
  Country: ES (occurrence: ES)
  Receive Date: 20220713
  Receipt Date: 20220713
  Transmission Date: 20221026
  Serious: Yes (Life-Threatening, Hospitalization, Other)
  Sender: FDA-Public Use
  Company Number: ES-AEMPS-1215012

PATIENT
  Age: 34 Year
  Sex: Female

DRUGS (4)
  1. QUETIAPINE [Suspect]
     Active Substance: QUETIAPINE
     Indication: Product used for unknown indication
     Dosage: 8 GRAM (1 TOTAL)
     Route: 048
     Dates: start: 20220515, end: 20220515
  2. CLONAZEPAM [Suspect]
     Active Substance: CLONAZEPAM
     Indication: Product used for unknown indication
     Dosage: 15 GRAM (1 TOTAL)
     Route: 048
     Dates: start: 20220515, end: 20220515
  3. OXCARBAZEPINE [Concomitant]
     Active Substance: OXCARBAZEPINE
     Indication: Borderline personality disorder
     Dosage: 900 MILLIGRAM, ONCE A DAY
     Route: 048
     Dates: start: 20210623
  4. TOPIRAMATE [Concomitant]
     Active Substance: TOPIRAMATE
     Indication: Borderline personality disorder
     Dosage: 400 MILLIGRAM, ONCE A DAY
     Route: 048
     Dates: start: 200909

REACTIONS (2)
  - Depressed level of consciousness [Recovered/Resolved]
  - Intentional overdose [Recovered/Resolved]

NARRATIVE: CASE EVENT DATE: 20220515
